FAERS Safety Report 9813100 (Version 1)
Quarter: 2014Q1

REPORT INFORMATION
  Report Type: Spontaneous
  Country: GB (occurrence: None)
  Receive Date: 20140109
  Receipt Date: 20140109
  Transmission Date: 20141002
  Serious: Yes (Other)
  Sender: FDA-Public Use
  Company Number: SYM-2013-14455

PATIENT
  Age: 50 Year
  Sex: Male

DRUGS (11)
  1. METRONIDAZOLE (METRONIDAZOLE) (METRONIDAZOLE) [Suspect]
     Indication: ROSACEA
     Route: 061
     Dates: start: 20131203, end: 20131208
  2. DESMOPRESSIN [Concomitant]
  3. HYDROCORTISONE [Concomitant]
  4. LEVOTHYROXINE SODIUM [Concomitant]
  5. LISINOPRIL [Concomitant]
  6. LORATADINE [Concomitant]
  7. MOMETASONE FUROATE [Concomitant]
  8. NEBIDO (TESTOSTERONE UNDECANOATE) [Concomitant]
  9. SIMVASTATIN [Concomitant]
  10. MULTIVITAMINS (MULTIVITAMINS) (ERGOCALCIFEROL, ASCORBIC ACID, FOLIC ACID, THIAMINE HYDROCHLORIDE, RETINOL, RIBOFLAVIN, NICOTINAMIDE, PANTHENOL) [Concomitant]
  11. GENERAL NUTRIENTS [Concomitant]

REACTIONS (2)
  - Vision blurred [None]
  - Visual acuity reduced [None]
